FAERS Safety Report 18541727 (Version 1)
Quarter: 2020Q4

REPORT INFORMATION
  Report Type: Report from Study
  Country: AU (occurrence: AU)
  Receive Date: 20201124
  Receipt Date: 20201124
  Transmission Date: 20210114
  Serious: Yes (Other)
  Sender: FDA-Public Use
  Company Number: AU-MYLANLABS-2020M1097126

PATIENT
  Age: 86 Year
  Sex: Male
  Weight: 99 kg

DRUGS (4)
  1. CLARITHROMYCIN. [Suspect]
     Active Substance: CLARITHROMYCIN
     Indication: MYCOBACTERIUM ULCERANS INFECTION
     Dosage: 5.1 MILLIGRAM/KILOGRAM
     Route: 048
  2. RIFAMPICIN [Suspect]
     Active Substance: RIFAMPIN
     Dosage: DOSE WAS REDUCED TO 300MG DAILY
     Route: 048
  3. RIFAMPICIN [Suspect]
     Active Substance: RIFAMPIN
     Indication: MYCOBACTERIUM ULCERANS INFECTION
     Dosage: 3 MILLIGRAM/KILOGRAM
     Route: 048
  4. CLARITHROMYCIN. [Suspect]
     Active Substance: CLARITHROMYCIN
     Dosage: DOSE WAS REDUCED TO 250MG TWICE DAILY
     Route: 048

REACTIONS (3)
  - Paradoxical drug reaction [Unknown]
  - Hepatic cirrhosis [Unknown]
  - Treatment failure [Unknown]
